FAERS Safety Report 14312842 (Version 1)
Quarter: 2017Q4

REPORT INFORMATION
  Report Type: Spontaneous
  Country: US (occurrence: US)
  Receive Date: 20171220
  Receipt Date: 20171220
  Transmission Date: 20180321
  Serious: Yes (Life-Threatening)
  Sender: FDA-Public Use
  Company Number: None

PATIENT
  Age: 44 Year
  Sex: Male
  Weight: 77.56 kg

DRUGS (1)
  1. IOPROMIDE [Suspect]
     Active Substance: IOPROMIDE
     Indication: ANGIOGRAM
     Route: 042
     Dates: start: 20171220, end: 20171220

REACTIONS (10)
  - Nausea [None]
  - Throat tightness [None]
  - Swelling face [None]
  - Anaphylactic reaction [None]
  - Vomiting [None]
  - Hypotension [None]
  - Urticaria [None]
  - Pruritus [None]
  - Respiratory distress [None]
  - Tachypnoea [None]

NARRATIVE: CASE EVENT DATE: 20171220
